FAERS Safety Report 6923949-4 (Version None)
Quarter: 2010Q3

REPORT INFORMATION
  Report Type: 
  Country: None (occurrence: None)
  Receive Date: 20100813
  Receipt Date: 20100804
  Transmission Date: 20110219
  Serious: Yes (Hospitalization)
  Sender: FDA-Public Use
  Company Number: TR-ELI_LILLY_AND_COMPANY-TR201008001207

PATIENT
  Weight: 1.3 kg

DRUGS (4)
  1. HUMULIN R [Suspect]
     Dosage: 12 U, 3/D
     Route: 064
  2. HUMULIN R [Suspect]
     Dosage: 4 IU, OTHER (NOON)
     Route: 064
  3. HUMULIN R [Suspect]
     Dosage: 4 IU, EACH EVENING
     Route: 064
  4. HUMULIN N [Suspect]
     Dosage: 1 IU, OTHER (AT NIGHT)
     Route: 064

REACTIONS (3)
  - DRUG EXPOSURE DURING PREGNANCY [None]
  - PREMATURE BABY [None]
  - SMALL FOR DATES BABY [None]
